FAERS Safety Report 24155761 (Version 1)
Quarter: 2024Q3

REPORT INFORMATION
  Report Type: Spontaneous
  Country: US (occurrence: US)
  Receive Date: 20240731
  Receipt Date: 20240731
  Transmission Date: 20241017
  Serious: Yes (Life-Threatening, Hospitalization)
  Sender: MYLAN
  Company Number: US-MYLANLABS-2024M1070315

PATIENT
  Age: 44 Year
  Sex: Male

DRUGS (1)
  1. ACETAMINOPHEN [Suspect]
     Active Substance: ACETAMINOPHEN
     Indication: Product used for unknown indication
     Dosage: UNK (40 TABLETS OVER THE PAST 1-2?DAYS) TABLET
     Route: 065

REACTIONS (4)
  - Intentional overdose [Recovering/Resolving]
  - Acute hepatic failure [Recovering/Resolving]
  - Oliguria [Recovering/Resolving]
  - Mental status changes [Recovered/Resolved]
